FAERS Safety Report 4716225-1 (Version None)
Quarter: 2005Q2

REPORT INFORMATION
  Report Type: 
  Country: None (occurrence: None)
  Receive Date: 20050630
  Receipt Date: 20050318
  Transmission Date: 20051028
  Serious: Yes (Hospitalization, Other)
  Sender: FDA-Public Use
  Company Number: USA050393584

PATIENT
  Age: 74 Year
  Sex: Female
  Weight: 105 kg

DRUGS (1)
  1. HUMALOG MIX 75/25 [Suspect]
     Dates: start: 20030101

REACTIONS (1)
  - PNEUMONIA [None]
